FAERS Safety Report 7432999-3 (Version None)
Quarter: 2011Q2

REPORT INFORMATION
  Report Type: 
  Country: None (occurrence: None)
  Receive Date: 20110415
  Receipt Date: 20110406
  Transmission Date: 20111010
  Serious: Yes (Disabling, Other)
  Sender: FDA-Public Use
  Company Number: ACO_23084_2011

PATIENT
  Age: 63 Year
  Sex: Male

DRUGS (1)
  1. AMPYRA [Suspect]
     Indication: PRODUCT USED FOR UNKNOWN INDICATION
     Dosage: 10MG, BID, ORAL
     Route: 048
     Dates: start: 20110131, end: 20110101

REACTIONS (3)
  - ABASIA [None]
  - MOBILITY DECREASED [None]
  - DRUG INEFFECTIVE [None]
